FAERS Safety Report 5895618-3 (Version None)
Quarter: 2008Q3

REPORT INFORMATION
  Report Type: 
  Country: None (occurrence: None)
  Receive Date: 20080924
  Receipt Date: 20071214
  Transmission Date: 20090109
  Serious: Yes (Other)
  Sender: FDA-Public Use
  Company Number: US-ASTRAZENECA-2006UW20478

PATIENT
  Age: 16401 Day
  Sex: Male
  Weight: 86.2 kg

DRUGS (10)
  1. SEROQUEL [Suspect]
     Indication: SLEEP DISORDER
     Route: 048
     Dates: start: 20020725, end: 20041001
  2. SEROQUEL [Suspect]
     Indication: ANXIETY
     Route: 048
     Dates: start: 20020725, end: 20041001
  3. SEROQUEL [Suspect]
     Route: 048
     Dates: start: 20041001, end: 20041001
  4. SEROQUEL [Suspect]
     Route: 048
     Dates: start: 20041001, end: 20041001
  5. RISPERDAL [Concomitant]
     Dates: start: 20020909
  6. RISPERDAL [Concomitant]
     Dates: start: 20021022
  7. ZYPREXA [Concomitant]
     Dates: start: 20021117
  8. ZOLOFT [Concomitant]
     Dates: start: 19970101
  9. WELLBUTRIN [Concomitant]
     Dosage: 75 MG, 150 MG
     Dates: start: 20021006
  10. NAVANE [Concomitant]
     Dates: start: 20020922

REACTIONS (3)
  - BLOOD CHOLESTEROL INCREASED [None]
  - DIABETES MELLITUS [None]
  - RENAL FAILURE [None]
